FAERS Safety Report 14203415 (Version 3)
Quarter: 2018Q3

REPORT INFORMATION
  Report Type: Spontaneous
  Country: DE (occurrence: DE)
  Receive Date: 20171120
  Receipt Date: 20180710
  Transmission Date: 20181010
  Serious: Yes (Hospitalization, Other)
  Sender: FDA-Public Use
  Company Number: DE-B.I. PHARMACEUTICALS,INC./RIDGEFIELD-2017-BI-061886

PATIENT
  Sex: Male
  Weight: 81 kg

DRUGS (1)
  1. JARDIANCE [Suspect]
     Active Substance: EMPAGLIFLOZIN
     Indication: DIABETES MELLITUS
     Route: 048
     Dates: start: 20170530, end: 20170609

REACTIONS (5)
  - Hypertensive crisis [Unknown]
  - Angina pectoris [Unknown]
  - Arrhythmia [Unknown]
  - Anxiety [Unknown]
  - Palpitations [Unknown]
